FAERS Safety Report 5585201-1 (Version None)
Quarter: 2008Q1

REPORT INFORMATION
  Report Type: 
  Country: None (occurrence: None)
  Receive Date: 20080109
  Receipt Date: 20080104
  Transmission Date: 20080703
  Serious: Yes (Life-Threatening, Other)
  Sender: FDA-Public Use
  Company Number: IE-BAYER-200810027BNE

PATIENT
  Age: 59 Year
  Sex: Female

DRUGS (1)
  1. ULTRAVIST (IOPROMIDE) 300 [Suspect]
     Indication: SCAN WITH CONTRAST
     Dosage: TOTAL DAILY DOSE: 90 ML
     Route: 042
     Dates: start: 20071228, end: 20071228

REACTIONS (5)
  - CHEST DISCOMFORT [None]
  - CYANOSIS [None]
  - LOSS OF CONSCIOUSNESS [None]
  - PANIC ATTACK [None]
  - URINARY INCONTINENCE [None]
